FAERS Safety Report 7565562-4 (Version None)
Quarter: 2011Q2

REPORT INFORMATION
  Report Type: 
  Country: None (occurrence: None)
  Receive Date: 20110615
  Receipt Date: 20110531
  Transmission Date: 20111010
  Serious: Yes (Life-Threatening, Hospitalization, Other)
  Sender: FDA-Public Use
  Company Number: FR-005372

PATIENT
  Age: 83 Year
  Sex: Male
  Weight: 65 kg

DRUGS (6)
  1. PRAVASTATIN [Concomitant]
  2. FIRMAGON [Suspect]
     Indication: PROSTATE CANCER METASTATIC
     Dosage: 80 MG 1X/MONTH, SUBCUTANEOUS
     Route: 058
     Dates: start: 20110413
  3. VALSARTAN AND HYDROCHLOROTHIAZIDE [Concomitant]
  4. MITOMYCIN [Concomitant]
  5. ASPIRIN [Concomitant]
  6. ALLOPURINOL [Concomitant]

REACTIONS (3)
  - MALAISE [None]
  - HYPERKALAEMIA [None]
  - ANAEMIA [None]
